FAERS Safety Report 21318646 (Version 2)
Quarter: 2022Q4

REPORT INFORMATION
  Report Type: Spontaneous
  Country: US (occurrence: US)
  Receive Date: 20220911
  Receipt Date: 20221109
  Transmission Date: 20230112
  Serious: No
  Sender: FDA-Public Use
  Company Number: US-SA-SAC20220830000293

PATIENT
  Age: 55 Year
  Sex: Female

DRUGS (1)
  1. DUPIXENT [Suspect]
     Active Substance: DUPILUMAB
     Indication: Asthma
     Dosage: 300 MG, QOW
     Route: 058
     Dates: start: 20220714

REACTIONS (8)
  - Injection site rash [Not Recovered/Not Resolved]
  - Contusion [Not Recovered/Not Resolved]
  - Impaired quality of life [Recovered/Resolved]
  - Oropharyngeal pain [Recovered/Resolved]
  - Injection site erythema [Not Recovered/Not Resolved]
  - Asthma [Recovered/Resolved]
  - Product dose omission in error [Unknown]
  - Therapeutic response decreased [Unknown]
